FAERS Safety Report 21411808 (Version 1)
Quarter: 2022Q4

REPORT INFORMATION
  Report Type: Spontaneous
  Country: GB (occurrence: GB)
  Receive Date: 20221005
  Receipt Date: 20221005
  Transmission Date: 20230113
  Serious: Yes (Other)
  Sender: FDA-Public Use
  Company Number: GB-MHRA-MED-202209221631566050-QWTJF

PATIENT
  Sex: Female
  Weight: 126 kg

DRUGS (3)
  1. ARIPIPRAZOLE [Suspect]
     Active Substance: ARIPIPRAZOLE
     Indication: Bipolar disorder
     Dosage: 7.5MG; THERAPY DURATION : 429 DAYS,FOLLOWING THE START OF ARIPIPRAZOLE 5MG DAILY THEN 7.5MG DAILY,
     Route: 065
     Dates: start: 20210720, end: 20220922
  2. CITALOPRAM [Concomitant]
     Active Substance: CITALOPRAM HYDROBROMIDE
     Indication: Bipolar disorder
     Dosage: THERAPY DURATION : 677 DAYS
     Dates: start: 20201008, end: 20220816
  3. TOPIRAMATE [Concomitant]
     Active Substance: TOPIRAMATE
     Indication: Bipolar disorder
     Dates: start: 20211020

REACTIONS (1)
  - Weight increased [Not Recovered/Not Resolved]

NARRATIVE: CASE EVENT DATE: 20210720
